FAERS Safety Report 19106180 (Version 21)
Quarter: 2022Q2

REPORT INFORMATION
  Report Type: Report from Study
  Country: PL (occurrence: None)
  Receive Date: 20210408
  Receipt Date: 20220428
  Transmission Date: 20220720
  Serious: Yes (Death, Life-Threatening, Hospitalization)
  Sender: FDA-Public Use
  Company Number: PL-ROCHE-2802984

PATIENT
  Age: 76 Year
  Sex: Female
  Weight: 84 kg

DRUGS (33)
  1. TIRAGOLUMAB [Suspect]
     Active Substance: TIRAGOLUMAB
     Indication: Lung adenocarcinoma
     Dosage: TIRAGOLUMAB ADMINISTERED BY IV INFUSION Q3W ON DAY 1 OF EACH 21-DAY CYCLE.?DATE OF MOST RECENT DOSE
     Route: 042
     Dates: start: 20200903
  2. ATEZOLIZUMAB [Suspect]
     Active Substance: ATEZOLIZUMAB
     Indication: Lung adenocarcinoma
     Dosage: ATEZOLIZUMAB 1200 MILLIGRAMS (MG) ADMINISTERED BY INTRAVENOUS (IV) INFUSION Q3W ON DAY 1 OF EACH 21-
     Route: 041
     Dates: start: 20200903
  3. TORSEMIDE [Concomitant]
     Active Substance: TORSEMIDE
     Indication: Hypertension
     Dates: start: 2000
  4. BISOPROLOL [Concomitant]
     Active Substance: BISOPROLOL
     Indication: Hypertension
     Dates: start: 2015
  5. INDAPAMIDE [Concomitant]
     Active Substance: INDAPAMIDE
     Indication: Hypertension
     Dates: start: 2000
  6. EUTHYROX [Concomitant]
     Active Substance: LEVOTHYROXINE SODIUM
     Indication: Hypothyroidism
     Dates: start: 2013
  7. TRANXENE [Concomitant]
     Active Substance: CLORAZEPATE DIPOTASSIUM
     Indication: Agitation
     Dates: start: 2000
  8. CAPTOPRIL [Concomitant]
     Active Substance: CAPTOPRIL
     Indication: Prophylaxis
     Dates: start: 2000
  9. CAPTOPRIL [Concomitant]
     Active Substance: CAPTOPRIL
     Dates: start: 20210415, end: 20210415
  10. NITRENDIPINE [Concomitant]
     Active Substance: NITRENDIPINE
     Indication: Hypertension
     Dates: start: 2000, end: 20210128
  11. RAMIPRIL [Concomitant]
     Active Substance: RAMIPRIL
     Indication: Hypertension
  12. IPP (POLAND) [Concomitant]
     Indication: Dyspepsia
     Dates: start: 20200924, end: 20201101
  13. NYSTATIN [Concomitant]
     Active Substance: NYSTATIN
     Indication: Oral candidiasis
     Dates: start: 20201009, end: 20201015
  14. LERCANIDIPINE [Concomitant]
     Active Substance: LERCANIDIPINE
     Indication: Blood pressure increased
     Dates: start: 20210128
  15. CEFUROXIME [Concomitant]
     Active Substance: CEFUROXIME
     Indication: Cystitis
     Dates: start: 20210312, end: 20210317
  16. CIPROFLOXACIN [Concomitant]
     Active Substance: CIPROFLOXACIN
     Indication: Cystitis
     Dates: start: 20210324, end: 20210329
  17. FUROSEMIDE [Concomitant]
     Active Substance: FUROSEMIDE
     Indication: Chronic kidney disease
     Dates: start: 20210324
  18. POTASSIUM CHLORIDE [Concomitant]
     Active Substance: POTASSIUM CHLORIDE
     Dates: start: 20210324, end: 20210331
  19. SOLU-MEDROL [Concomitant]
     Active Substance: METHYLPREDNISOLONE SODIUM SUCCINATE
     Indication: Colitis
     Route: 042
     Dates: start: 20210331
  20. SOLU-MEDROL [Concomitant]
     Active Substance: METHYLPREDNISOLONE SODIUM SUCCINATE
     Indication: Renal failure
  21. METFORMIN HYDROCHLORIDE [Concomitant]
     Active Substance: METFORMIN HYDROCHLORIDE
     Indication: Diabetes mellitus
     Dates: start: 20210218, end: 20210331
  22. NYSTATYNA [Concomitant]
     Dates: start: 20210401
  23. DOBROSON [Concomitant]
     Indication: Insomnia
     Dates: start: 20210401
  24. RESONIUM [Concomitant]
     Active Substance: SODIUM POLYSTYRENE SULFONATE
     Indication: Hyperkalaemia
     Route: 048
     Dates: start: 20210331, end: 20210331
  25. GENSULIN [Concomitant]
     Indication: Diabetes mellitus
     Dosage: 6 OTHER
     Route: 058
     Dates: start: 20210331
  26. FLUCONAZOLE [Concomitant]
     Active Substance: FLUCONAZOLE
     Indication: Groin infection
     Route: 042
     Dates: start: 20210419
  27. MAGNESIUM SULFURICUM [Concomitant]
     Indication: Magnesium deficiency
     Route: 042
     Dates: start: 20210418, end: 20210418
  28. DOBROSON [Concomitant]
     Indication: Insomnia
     Dates: start: 20210401
  29. FOMUKAL [Concomitant]
     Indication: Candida infection
     Dates: start: 20200924, end: 20201029
  30. ENOXAPARIN SODIUM [Concomitant]
     Active Substance: ENOXAPARIN SODIUM
     Route: 058
     Dates: start: 20210422, end: 20210422
  31. ACETAMINOPHEN [Concomitant]
     Active Substance: ACETAMINOPHEN
     Indication: Headache
     Dates: start: 20210415, end: 20210415
  32. IBUPROFEN [Concomitant]
     Active Substance: IBUPROFEN
     Indication: Prophylaxis
     Dates: start: 20210416, end: 20210416
  33. FURAGIN [Concomitant]
     Indication: Cystitis
     Dates: start: 20210317, end: 20210325

REACTIONS (4)
  - Sepsis [Fatal]
  - Nephritis [Recovering/Resolving]
  - Blood creatinine increased [Not Recovered/Not Resolved]
  - Colitis [Recovered/Resolved]

NARRATIVE: CASE EVENT DATE: 20201015
